FAERS Safety Report 7800362-9 (Version None)
Quarter: 2011Q4

REPORT INFORMATION
  Report Type: 
  Country: None (occurrence: None)
  Receive Date: 20111006
  Receipt Date: 20110930
  Transmission Date: 20120403
  Serious: Yes (Hospitalization)
  Sender: FDA-Public Use
  Company Number: US-B.I. PHARMACEUTICALS,INC./RIDGEFIELD-2011-BP-19312BP

PATIENT
  Sex: Female

DRUGS (9)
  1. TORSEMIDE [Concomitant]
     Indication: OEDEMA
     Route: 048
     Dates: start: 20010424
  2. SYNTHROID [Concomitant]
  3. CALCIUM ACETATE [Concomitant]
     Dosage: 1000 MG
     Route: 048
     Dates: start: 20000713
  4. COLACE [Concomitant]
     Dosage: 200 MG
     Route: 048
     Dates: start: 20110811
  5. ASCORBIC ACID [Concomitant]
     Dosage: 1000 MG
     Route: 048
     Dates: start: 20110811
  6. FERROUS SULFATE TAB [Concomitant]
     Dosage: 650 MG
     Dates: start: 20110811
  7. PRADAXA [Suspect]
     Indication: ATRIAL FIBRILLATION
     Dosage: 300 MG
     Route: 048
     Dates: start: 20110629, end: 20110731
  8. ATENOLOL [Concomitant]
     Indication: ATRIAL FIBRILLATION
     Dosage: 25 MG
     Route: 048
     Dates: start: 20060501
  9. LEVOTHYROXINE SODIUM [Concomitant]
     Indication: HYPOTHYROIDISM
     Dosage: 150 MCG
     Route: 048
     Dates: start: 20070604

REACTIONS (7)
  - HAEMATURIA [None]
  - ANAEMIA [None]
  - HAEMATOCRIT ABNORMAL [None]
  - HYPOTENSION [None]
  - MELAENA [None]
  - DYSPNOEA [None]
  - GASTROINTESTINAL HAEMORRHAGE [None]
